FAERS Safety Report 18393271 (Version 1)
Quarter: 2020Q4

REPORT INFORMATION
  Report Type: Spontaneous
  Country: FR (occurrence: FR)
  Receive Date: 20201016
  Receipt Date: 20201016
  Transmission Date: 20210114
  Serious: Yes (Hospitalization)
  Sender: FDA-Public Use
  Company Number: FR-MYLANLABS-2020M1086762

PATIENT
  Age: 55 Year
  Sex: Female
  Weight: 53 kg

DRUGS (3)
  1. IMBRUVICA [Suspect]
     Active Substance: IBRUTINIB
     Indication: LYMPHOCYTIC LYMPHOMA
     Dosage: 420 MILLIGRAM, QD
     Route: 048
     Dates: start: 20200430, end: 20200902
  2. BACTRIM [Suspect]
     Active Substance: SULFAMETHOXAZOLE\TRIMETHOPRIM
     Indication: LYMPHOCYTIC LYMPHOMA
     Dosage: 3 DOSAGE FORM, QW
     Route: 048
     Dates: start: 20200430, end: 20200817
  3. VALACICLOVIR [Suspect]
     Active Substance: VALACYCLOVIR HYDROCHLORIDE
     Indication: LYMPHOCYTIC LYMPHOMA
     Dosage: 1000 MILLIGRAM, QD
     Route: 048
     Dates: start: 20200430, end: 20200825

REACTIONS (2)
  - Hepatitis acute [Recovering/Resolving]
  - Off label use [Unknown]

NARRATIVE: CASE EVENT DATE: 20200713
